FAERS Safety Report 7975730 (Version 3)
Quarter: 2013Q3

REPORT INFORMATION
  Report Type: Spontaneous
  Country: GB (occurrence: GB)
  Receive Date: 20110606
  Receipt Date: 20130718
  Transmission Date: 20140515
  Serious: Yes (Death, Hospitalization)
  Sender: FDA-Public Use
  Company Number: GB-AMGEN-GBRCT2011028344

PATIENT
  Age: 62 Year
  Sex: Male
  Weight: 68.3 kg

DRUGS (7)
  1. PANITUMUMAB [Suspect]
     Indication: ADENOCARCINOMA GASTRIC
     Dosage: 9 MG/KG, UNK
     Route: 042
     Dates: start: 20110121
  2. EPIRUBICIN [Concomitant]
     Indication: ADENOCARCINOMA GASTRIC
     Dosage: 50 MG/M2, UNK
     Route: 042
     Dates: start: 20110121
  3. OXALIPLATIN [Concomitant]
     Indication: ADENOCARCINOMA GASTRIC
     Dosage: 100 MG/M2, UNK
     Route: 042
     Dates: start: 20110121
  4. CAPECITABINE [Concomitant]
     Indication: ADENOCARCINOMA GASTRIC
     Dosage: 1000 MG/M2, UNK
     Route: 048
     Dates: start: 20110121
  5. BENDROFLUAZIDE [Concomitant]
     Dosage: UNK
  6. AMLODIPINE [Concomitant]
     Dosage: 5 MG, QD
     Route: 048
  7. MINICYCLINE [Concomitant]

REACTIONS (4)
  - Necrotising fasciitis [Fatal]
  - Organ failure [Fatal]
  - Sepsis [Fatal]
  - Drug interaction [Unknown]
